FAERS Safety Report 14702975 (Version 1)
Quarter: 2018Q2

REPORT INFORMATION
  Report Type: Spontaneous
  Country: FR (occurrence: FR)
  Receive Date: 20180402
  Receipt Date: 20180402
  Transmission Date: 20180711
  Serious: Yes (Other)
  Sender: FDA-Public Use
  Company Number: FR-MERCK KGAA-2044867

PATIENT
  Age: 43 Year
  Sex: Female

DRUGS (1)
  1. NOVOTHYROX [Suspect]
     Active Substance: LEVOTHYROXINE SODIUM
     Indication: PRODUCT USED FOR UNKNOWN INDICATION

REACTIONS (29)
  - Sleep disorder [None]
  - Alopecia [None]
  - Depressed mood [None]
  - Impaired driving ability [None]
  - Asthenia [None]
  - Malaise [None]
  - Insurance issue [None]
  - Hot flush [None]
  - Decreased appetite [None]
  - Fatigue [None]
  - Palpitations [None]
  - Migraine [None]
  - Apathy [None]
  - Partner stress [None]
  - Muscle spasms [None]
  - Weight decreased [None]
  - General physical health deterioration [None]
  - Arthralgia [None]
  - Dizziness [None]
  - Head discomfort [None]
  - Negative thoughts [None]
  - Social avoidant behaviour [None]
  - Muscular weakness [None]
  - Mood altered [None]
  - Emotional disorder [None]
  - Ligament operation [None]
  - Disturbance in attention [None]
  - Pain [None]
  - Blood alkaline phosphatase decreased [None]

NARRATIVE: CASE EVENT DATE: 20170607
